FAERS Safety Report 25903365 (Version 1)
Quarter: 2025Q4

REPORT INFORMATION
  Report Type: Spontaneous
  Country: US (occurrence: US)
  Receive Date: 20251009
  Receipt Date: 20251009
  Transmission Date: 20260118
  Serious: No
  Sender: CB FLEET
  Company Number: US-PRESTIGE-202507-US-002016

PATIENT
  Age: 61 Year
  Sex: Female

DRUGS (1)
  1. MONISTAT 3 COMBINATION PACK [Suspect]
     Active Substance: MICONAZOLE NITRATE
     Indication: Fungal infection
     Dosage: THIRD TREATMENT

REACTIONS (4)
  - Vulvovaginal injury [Recovering/Resolving]
  - Vulvovaginal pain [Recovered/Resolved]
  - Intentional overdose [None]
  - Product delivery mechanism issue [None]
